FAERS Safety Report 16544333 (Version 1)
Quarter: 2019Q3

REPORT INFORMATION
  Report Type: Spontaneous
  Country: TR (occurrence: TR)
  Receive Date: 20190709
  Receipt Date: 20190709
  Transmission Date: 20191004
  Serious: Yes (Other)
  Sender: FDA-Public Use
  Company Number: PHHY2019TR154600

PATIENT

DRUGS (1)
  1. FORMOTEROL [Suspect]
     Active Substance: FORMOTEROL
     Indication: CHRONIC OBSTRUCTIVE PULMONARY DISEASE
     Dosage: 24 UG, BID
     Route: 055

REACTIONS (3)
  - Intraocular pressure increased [Unknown]
  - Visual field defect [Unknown]
  - Angle closure glaucoma [Unknown]
